FAERS Safety Report 8828108 (Version 1)
Quarter: 2012Q4

REPORT INFORMATION
  Report Type: 
  Country: US (occurrence: US)
  Receive Date: 20121005
  Receipt Date: 20121005
  Transmission Date: 20130627
  Serious: Yes (Death)
  Sender: FDA-Public Use
  Company Number: US-PFIZER INC-2012242950

PATIENT
  Age: 72 Year
  Sex: Male

DRUGS (2)
  1. SUTENT [Suspect]
     Dosage: 50 mg, daily
  2. COUMADIN [Suspect]
     Indication: RENAL CANCER
     Dosage: UNK

REACTIONS (1)
  - Haemorrhage [Fatal]
